FAERS Safety Report 6339798-4 (Version None)
Quarter: 2009Q3

REPORT INFORMATION
  Report Type: 
  Country: None (occurrence: None)
  Receive Date: 20090903
  Receipt Date: 20090824
  Transmission Date: 20100115
  Serious: Yes (Other)
  Sender: FDA-Public Use
  Company Number: PHHY2009MX35879

PATIENT
  Age: 57 Year
  Sex: Female

DRUGS (5)
  1. ZELMAC [Suspect]
     Indication: IRRITABLE BOWEL SYNDROME
     Dosage: 6 MG, QD
     Route: 048
     Dates: start: 20031101
  2. TEGRETOL [Concomitant]
     Indication: EPILEPSY
     Dosage: 6 TABLETS PER DAY
     Dates: start: 19901101
  3. VALIUM [Concomitant]
     Dosage: 2 TABLETS PER DAY
  4. VYTORIN [Concomitant]
     Dosage: 2 TABLETS PER DAY
  5. NATURETTY [Concomitant]

REACTIONS (5)
  - ABDOMINAL PAIN [None]
  - BACK PAIN [None]
  - BALANCE DISORDER [None]
  - DIZZINESS [None]
  - HYPERTRIGLYCERIDAEMIA [None]
